FAERS Safety Report 21104398 (Version 1)
Quarter: 2022Q3

REPORT INFORMATION
  Report Type: Spontaneous
  Country: US (occurrence: US)
  Receive Date: 20220720
  Receipt Date: 20220720
  Transmission Date: 20221026
  Serious: Yes (Hospitalization)
  Sender: FDA-Public Use
  Company Number: US-ICU MEDICAL, INC.-ICU2022US00028

PATIENT

DRUGS (4)
  1. STERILE WATER [Suspect]
     Active Substance: WATER
     Indication: Product used for unknown indication
     Dosage: 11 BAGS, 1000 ML, INJECTION
     Route: 065
     Dates: start: 20220420
  2. STERILE WATER [Suspect]
     Active Substance: WATER
     Dosage: 4 BAGS,1000 ML, INJECTION
     Route: 065
     Dates: start: 20220420
  3. KENALOG [Suspect]
     Active Substance: TRIAMCINOLONE ACETONIDE
     Indication: Product used for unknown indication
     Dosage: INJ MDV 10MG/ML
     Route: 065
     Dates: start: 20220420
  4. DEXTROSE [Suspect]
     Active Substance: DEXTROSE
     Indication: Product used for unknown indication
     Dosage: FTV 50ML
     Route: 065
     Dates: start: 20220420

REACTIONS (3)
  - Candida infection [Not Recovered/Not Resolved]
  - Periarthritis [Not Recovered/Not Resolved]
  - Joint swelling [Not Recovered/Not Resolved]

NARRATIVE: CASE EVENT DATE: 20220427
